FAERS Safety Report 5238172-1 (Version None)
Quarter: 2007Q1

REPORT INFORMATION
  Report Type: 
  Country: None (occurrence: None)
  Receive Date: 20070215
  Receipt Date: 20070209
  Transmission Date: 20070707
  Serious: Yes (Life-Threatening, Disabling)
  Sender: FDA-Public Use
  Company Number: DE-BAYER-200611665BVD

PATIENT
  Age: 47 Year
  Sex: Male
  Weight: 72 kg

DRUGS (11)
  1. TRASYLOL [Suspect]
     Indication: CORONARY ARTERY BYPASS
     Dates: start: 20061117, end: 20061117
  2. ASPIRIN [Concomitant]
  3. PANTOZOL [Concomitant]
     Dosage: AS USED: 20 MG
  4. VESDIL PLUS [Concomitant]
  5. BLOPRESS [Concomitant]
     Dosage: AS USED: 8 MG
  6. SIMVAHEXAL [Concomitant]
  7. KALINOR [Concomitant]
     Route: 048
  8. FERROSANOL [Concomitant]
  9. CEFAZOLIN [Concomitant]
     Dosage: AS USED: 2 G
     Route: 042
  10. NOVORAPID [Concomitant]
  11. LANTUS [Concomitant]

REACTIONS (2)
  - ANAPHYLACTIC REACTION [None]
  - VISUAL ACUITY REDUCED [None]
